FAERS Safety Report 10856301 (Version 1)
Quarter: 2015Q1

REPORT INFORMATION
  Report Type: Spontaneous
  Country: GB (occurrence: None)
  Receive Date: 20150209
  Receipt Date: 20150209
  Transmission Date: 20150721
  Serious: Yes (Other)
  Sender: FDA-Public Use
  Company Number: WIL-001-15-GB

PATIENT
  Age: 57 Year
  Sex: Male

DRUGS (3)
  1. WILATE [Suspect]
     Active Substance: HUMAN COAGULATION FACTOR VIII/VON WILLEBRAND FACTOR COMPLEX
     Indication: VON WILLEBRAND^S DISEASE
     Route: 040
     Dates: start: 20141222, end: 20141222
  2. TRANEXAMIC ACID. [Concomitant]
     Active Substance: TRANEXAMIC ACID
  3. RED BLOOD CELL [Concomitant]

REACTIONS (6)
  - Blood pressure increased [None]
  - Flushing [None]
  - Liver transplant [None]
  - Heart rate increased [None]
  - Chest pain [None]
  - Dyspnoea [None]

NARRATIVE: CASE EVENT DATE: 20141222
